FAERS Safety Report 9017469 (Version 1)
Quarter: 2013Q1

REPORT INFORMATION
  Report Type: Spontaneous
  Country: FR (occurrence: FR)
  Receive Date: 20130117
  Receipt Date: 20130117
  Transmission Date: 20140127
  Serious: Yes (Congenital Anomaly, Other)
  Sender: FDA-Public Use
  Company Number: FR-MYLANLABS-2013S1000889

PATIENT
  Sex: Female

DRUGS (1)
  1. LOSARTAN [Suspect]
     Route: 065

REACTIONS (4)
  - Oligohydramnios [Not Recovered/Not Resolved]
  - Renal aplasia [Not Recovered/Not Resolved]
  - Abortion induced [Recovered/Resolved]
  - Exposure during pregnancy [Recovered/Resolved]
